FAERS Safety Report 6722911-4 (Version None)
Quarter: 2010Q2

REPORT INFORMATION
  Report Type: 
  Country: None (occurrence: None)
  Receive Date: 20100513
  Receipt Date: 20100505
  Transmission Date: 20101027
  Serious: Yes (Hospitalization)
  Sender: FDA-Public Use
  Company Number: US-BIOGENIDEC-2009BI027316

PATIENT
  Age: 56 Year
  Sex: Female
  Weight: 77 kg

DRUGS (1)
  1. TYSABRI [Suspect]
     Indication: MULTIPLE SCLEROSIS
     Route: 042
     Dates: start: 20080201

REACTIONS (5)
  - DERMATITIS BULLOUS [None]
  - FUNGAL SKIN INFECTION [None]
  - SCAR [None]
  - SENSATION OF HEAVINESS [None]
  - STAPHYLOCOCCAL INFECTION [None]
